FAERS Safety Report 6609224-6 (Version None)
Quarter: 2010Q1

REPORT INFORMATION
  Report Type: 
  Country: None (occurrence: None)
  Receive Date: 20100224
  Receipt Date: 20100213
  Transmission Date: 20100710
  Serious: Yes (Other)
  Sender: FDA-Public Use
  Company Number: 2010S1001080

PATIENT
  Sex: Male

DRUGS (1)
  1. PHOSPHOSODA             FLAVOR NOT SPECIFIED [Suspect]
     Indication: COLONOSCOPY
     Dosage: PO
     Route: 048
     Dates: start: 20060201

REACTIONS (5)
  - ANAEMIA [None]
  - BLOOD CREATININE INCREASED [None]
  - DIALYSIS [None]
  - GLOMERULAR FILTRATION RATE DECREASED [None]
  - RENAL DISORDER [None]
